FAERS Safety Report 15462162 (Version 1)
Quarter: 2018Q4

REPORT INFORMATION
  Report Type: Spontaneous
  Country: US (occurrence: US)
  Receive Date: 20181004
  Receipt Date: 20181004
  Transmission Date: 20190204
  Serious: No
  Sender: FDA-Public Use
  Company Number: US-ACCORD-070622

PATIENT
  Age: 47 Year
  Sex: Male
  Weight: 87.54 kg

DRUGS (2)
  1. ARIPIPRAZOLE. [Suspect]
     Active Substance: ARIPIPRAZOLE
     Indication: SCHIZOPHRENIA
     Dosage: INCREASED 10 MG QD IN JAN-2018 THEN UP TO 15 MG QD FROM 01-FEB-2018
     Route: 048
     Dates: start: 20180201
  2. LEVOTHYROXINE. [Concomitant]
     Active Substance: LEVOTHYROXINE
     Dosage: 75 MCG QD

REACTIONS (1)
  - Tremor [Unknown]
